FAERS Safety Report 25388564 (Version 1)
Quarter: 2025Q2

REPORT INFORMATION
  Report Type: Spontaneous
  Country: PL (occurrence: PL)
  Receive Date: 20250603
  Receipt Date: 20250603
  Transmission Date: 20250717
  Serious: Yes (Other)
  Sender: BANNER
  Company Number: None

PATIENT
  Age: 61 Year
  Sex: Male

DRUGS (14)
  1. IBUPROFEN [Suspect]
     Active Substance: IBUPROFEN
     Indication: Atrial fibrillation
  2. DAPAGLIFLOZIN [Suspect]
     Active Substance: DAPAGLIFLOZIN
     Indication: Atrial fibrillation
  3. METOPROLOL [Suspect]
     Active Substance: METOPROLOL
     Indication: Atrial fibrillation
  4. FLECAINIDE ACETATE [Suspect]
     Active Substance: FLECAINIDE ACETATE
     Indication: Atrial fibrillation
     Dosage: 200 MG, QD
  5. RIVAROXABAN [Suspect]
     Active Substance: RIVAROXABAN
     Indication: Atrial fibrillation
  6. ZOFENOPRIL [Suspect]
     Active Substance: ZOFENOPRIL
     Indication: Atrial fibrillation
  7. TOLPERISONE HYDROCHLORIDE [Concomitant]
     Active Substance: TOLPERISONE HYDROCHLORIDE
     Indication: Sacral pain
     Dosage: 150 MG, BID
     Route: 048
  8. DAPAGLIFLOZIN [Suspect]
     Active Substance: DAPAGLIFLOZIN
     Indication: Cardiac failure
  9. IBUPROFEN [Suspect]
     Active Substance: IBUPROFEN
     Indication: Cardiac failure
  10. IBUPROFEN [Suspect]
     Active Substance: IBUPROFEN
     Indication: Product used for unknown indication
  11. ZOFENOPRIL [Suspect]
     Active Substance: ZOFENOPRIL
     Indication: Cardiac failure
  12. FLECAINIDE ACETATE [Suspect]
     Active Substance: FLECAINIDE ACETATE
     Indication: Cardiac failure
     Dosage: 200 MG, QD
  13. METOPROLOL [Suspect]
     Active Substance: METOPROLOL
     Indication: Cardiac failure
  14. RIVAROXABAN [Suspect]
     Active Substance: RIVAROXABAN
     Indication: Cardiac failure

REACTIONS (2)
  - Ventricular arrhythmia [Unknown]
  - Enzyme inhibition [Unknown]
